FAERS Safety Report 6841194-8 (Version None)
Quarter: 2010Q3

REPORT INFORMATION
  Report Type: 
  Country: None (occurrence: None)
  Receive Date: 20100714
  Receipt Date: 20070629
  Transmission Date: 20110219
  Serious: No
  Sender: FDA-Public Use
  Company Number: US-PFIZER INC-2007054374

PATIENT
  Sex: Female
  Weight: 67.727 kg

DRUGS (7)
  1. CHANTIX [Suspect]
     Indication: SMOKING CESSATION THERAPY
     Dates: start: 20070619
  2. DEPAKOTE [Concomitant]
  3. ABILIFY [Concomitant]
  4. LOPRESSOR [Concomitant]
  5. PLENDIL [Concomitant]
  6. MICARDIS HCT [Concomitant]
  7. LIPITOR [Concomitant]

REACTIONS (2)
  - DIZZINESS [None]
  - FALL [None]
